FAERS Safety Report 8958657 (Version 1)
Quarter: 2012Q4

REPORT INFORMATION
  Report Type: Spontaneous
  Country: US (occurrence: None)
  Receive Date: 20121206
  Receipt Date: 20121206
  Transmission Date: 20130627
  Serious: Yes (Disabling, Other)
  Sender: FDA-Public Use
  Company Number: None

PATIENT
  Age: 59 Year
  Sex: Female
  Weight: 52.16 kg

DRUGS (1)
  1. ZOMETA [Suspect]
     Indication: CANCER
     Dates: start: 20120201, end: 20121001

REACTIONS (4)
  - Stomatitis [None]
  - Osteonecrosis [None]
  - Pain [None]
  - Weight decreased [None]
